FAERS Safety Report 5155886-2 (Version None)
Quarter: 2006Q4

REPORT INFORMATION
  Report Type: 
  Country: None (occurrence: None)
  Receive Date: 20061122
  Receipt Date: 20061110
  Transmission Date: 20070319
  Serious: Yes (Other)
  Sender: FDA-Public Use
  Company Number: PHBS2006GT17601

PATIENT
  Age: 83 Year
  Sex: Male

DRUGS (5)
  1. FUROSEMIDE [Concomitant]
     Dosage: 40 MG/DAY
     Route: 048
  2. COUMADIN [Concomitant]
     Dosage: 1/4 TABLET/DAY
     Route: 048
  3. DIGOXIN [Concomitant]
  4. ALDACTONE [Concomitant]
     Dosage: 100 MG/DAY
     Route: 048
  5. DIOVAN [Suspect]
     Indication: HYPERTENSION
     Dosage: 160 MG/DAY
     Route: 048
     Dates: start: 20060801

REACTIONS (1)
  - PARKINSONISM [None]
